FAERS Safety Report 10696421 (Version 3)
Quarter: 2015Q1

REPORT INFORMATION
  Report Type: Report from Study
  Country: US (occurrence: US)
  Receive Date: 20150107
  Receipt Date: 20150212
  Transmission Date: 20150721
  Serious: Yes (Hospitalization)
  Sender: FDA-Public Use
  Company Number: US-ACTELION-A-US2014-110512

PATIENT
  Age: 60 Year
  Sex: Female

DRUGS (4)
  1. ADCIRCA [Concomitant]
     Active Substance: TADALAFIL
  2. VELETRI [Suspect]
     Active Substance: EPOPROSTENOL
     Indication: PULMONARY ARTERIAL HYPERTENSION
     Dosage: 36.5 NG/KG, PER MIN
     Route: 042
     Dates: start: 20130222
  3. WARFARIN [Concomitant]
     Active Substance: WARFARIN
  4. LETAIRIS [Concomitant]
     Active Substance: AMBRISENTAN

REACTIONS (4)
  - Infection [Unknown]
  - Upper limb fracture [Unknown]
  - Fall [Unknown]
  - Head injury [Unknown]
